FAERS Safety Report 25876972 (Version 1)
Quarter: 2025Q4

REPORT INFORMATION
  Report Type: Report from Study
  Country: EU (occurrence: EU)
  Receive Date: 20251003
  Receipt Date: 20251003
  Transmission Date: 20260119
  Serious: Yes (Life-Threatening, Hospitalization)
  Sender: Day One Biopharmaceuticals
  Company Number: EU-IPSEN Group, Research and Development-2025-23899

PATIENT

DRUGS (9)
  1. OJEMDA [Suspect]
     Active Substance: TOVORAFENIB
     Indication: Glioma
     Dosage: 600 MILLIGRAM
     Dates: start: 20240916
  2. OJEMDA [Suspect]
     Active Substance: TOVORAFENIB
     Dosage: 500 MILLIGRAM
     Dates: start: 20241112, end: 20241129
  3. LEVOTHYROXINE SODIUM [Concomitant]
     Active Substance: LEVOTHYROXINE SODIUM
     Indication: Hypothyroidism
     Dosage: 112 MICROGRAM MORNING AND EVENING
  4. LEVETIRACETAM [Concomitant]
     Active Substance: LEVETIRACETAM
     Dosage: 750 MG MORNING AND EVENING
  5. ACETAMINOPHEN [Concomitant]
     Active Substance: ACETAMINOPHEN
     Indication: Pain
     Dosage: 1 GRAM
  6. POTASSIUM CHLORIDE [Concomitant]
     Active Substance: POTASSIUM CHLORIDE
     Dosage: 1200 MG MORNING, MIDDAY, EVENING
  7. CHOLECALCIFEROL [Concomitant]
     Active Substance: CHOLECALCIFEROL
     Dosage: 80000 INTERNATIONAL UNIT
  8. HYDROCORTISONE [Concomitant]
     Active Substance: HYDROCORTISONE
     Dosage: 10MG MORNING, 7.5MG MIDDAY, 5MG EVENING
  9. DESMOPRESSIN ACETATE [Concomitant]
     Active Substance: DESMOPRESSIN ACETATE
     Dosage: DESMOPRESSIN ACETATE TRIHYDRATE 60?G MORNING, 30?G MIDDAY, 90?G EVENING

REACTIONS (6)
  - Haematotoxicity [Recovering/Resolving]
  - Mucocutaneous toxicity [Recovering/Resolving]
  - Cerebral haematoma [Recovered/Resolved]
  - Asthenia [Unknown]
  - Somnolence [Unknown]
  - Headache [Unknown]

NARRATIVE: CASE EVENT DATE: 20241203
